FAERS Safety Report 13936261 (Version 1)
Quarter: 2017Q3

REPORT INFORMATION
  Report Type: Spontaneous
  Country: BR (occurrence: BR)
  Receive Date: 20170905
  Receipt Date: 20170905
  Transmission Date: 20171127
  Serious: Yes (Hospitalization)
  Sender: FDA-Public Use
  Company Number: BR-GLAXOSMITHKLINE-BR2017GSK136145

PATIENT
  Sex: Female
  Weight: 14 kg

DRUGS (1)
  1. ZINNAT [Suspect]
     Active Substance: CEFUROXIME AXETIL
     Indication: INFECTION
     Dosage: 4 ML, BID
     Route: 048

REACTIONS (3)
  - Ill-defined disorder [Unknown]
  - Infection [Unknown]
  - Blood test abnormal [Unknown]
